FAERS Safety Report 4550146-2 (Version None)
Quarter: 2005Q1

REPORT INFORMATION
  Report Type: 
  Country: None (occurrence: None)
  Receive Date: 20050107
  Receipt Date: 20041228
  Transmission Date: 20050727
  Serious: Yes (Hospitalization, Other)
  Sender: FDA-Public Use
  Company Number: 2004121871

PATIENT
  Age: 61 Year
  Sex: Female
  Weight: 69.8539 kg

DRUGS (3)
  1. CELEBREX [Suspect]
     Indication: ARTHRITIS
     Dosage: 400 MG (200 MG, 2 IN 1 D), ORAL
     Route: 048
     Dates: end: 20041201
  2. CITALOPRAM HYDROBROMIDE [Concomitant]
  3. ATORVASTATIN(ATORVASTATIN) [Concomitant]

REACTIONS (4)
  - CEREBROVASCULAR ACCIDENT [None]
  - DIARRHOEA [None]
  - FEAR [None]
  - HEMIPLEGIA [None]
